FAERS Safety Report 8878157 (Version 2)
Quarter: 2012Q4

REPORT INFORMATION
  Report Type: Spontaneous
  Country: ES (occurrence: None)
  Receive Date: 20121026
  Receipt Date: 20121130
  Transmission Date: 20130627
  Serious: Yes (Hospitalization)
  Sender: FDA-Public Use
  Company Number: 2012-1185

PATIENT
  Age: 63 Year
  Sex: Male
  Weight: 71.4 kg

DRUGS (29)
  1. CARFILZOMIB [Suspect]
     Indication: MULTIPLE MYELOMA
     Dosage: 9.8286 MG (34.4 MG, Days 1, 2) Intravenous
     Route: 042
     Dates: start: 20110704, end: 20110705
  2. CARFILZOMIB [Suspect]
     Indication: MULTIPLE MYELOMA
     Dosage: 8.8381 mg (46.4 mg, day 8, 9, 15, 16 every 28 days) Intravenous
     Route: 042
     Dates: start: 20110711, end: 20110719
  3. CARFILZOMIB [Suspect]
     Indication: MULTIPLE MYELOMA
     Dosage: 9.9429 mg (46.4 mg, Days 1, 2, 8, 9, 15, 16, every 28 days), Intravenous
     Route: 042
     Dates: start: 20110801, end: 20120103
  4. CARFILZOMIB [Suspect]
     Indication: MULTIPLE MYELOMA
     Dosage: 9.9429 mg (46.4 mg, Days 1, 2, 8, 9, 15, 16, every 28 days),Intravenous
     Route: 042
     Dates: start: 20120130, end: 20120306
  5. CARFILZOMIB [Suspect]
     Indication: MULTIPLE MYELOMA
     Dosage: 7.3714 mg (34.4 mg. Days 1, 2, 8, 9, 15, 16, every 28 days), Intravenous
     Route: 042
     Dates: start: 20120312, end: 20120312
  6. CARFILZOMIB [Suspect]
     Indication: MULTIPLE MYELOMA
     Dosage: 6)	9.9429 mg (46.4 mg,Days 1, 2, 8, 9, 15, 16, every 28 days),Intravenous
     Route: 042
     Dates: start: 20120313, end: 20120508
  7. CARFILZOMIB [Suspect]
     Indication: MULTIPLE MYELOMA
     Dosage: 7)	9.9429 mg (46.4 mg,Days 1, 2, 8, 9, 15, 16, every 28 days),Intravenous
     Route: 042
     Dates: start: 20120528, end: 20120611
  8. CARFILZOMIB [Suspect]
     Indication: MULTIPLE MYELOMA
     Dosage: 6.6286 mg (46.4 mg, Days 1, 2, 15, 16, every 28 days), Intravenous
     Route: 042
     Dates: start: 20120613, end: 20120807
  9. CARFILZOMIB [Suspect]
     Indication: MULTIPLE MYELOMA
     Dosage: 4.8571 mg (34 mg, Days 1, 2, 15, 16, every days), Intravenous
     Route: 042
     Dates: start: 20120827, end: 20120828
  10. CARFILZOMIB [Suspect]
     Indication: MULTIPLE MYELOMA
     Dosage: 4.8571 mg (34 mg,Days 1, 2, 15, 16, every 28 days),Intravenous
     Route: 042
     Dates: start: 20121105
  11. LENALIDOMIDE [Suspect]
     Indication: MULTIPLE MYELOMA
     Dosage: 18.75 mg (25 mg, days 1-21, every 28 days), Oral
     Route: 048
     Dates: start: 20110704, end: 20120205
  12. LENALIDOMIDE [Suspect]
     Indication: MULTIPLE MYELOMA
     Dosage: 18.75 mg (25 mg, Days 1-21, every 28 days),Oral
     Route: 048
     Dates: start: 20120213, end: 20120715
  13. LENALIDOMIDE [Suspect]
     Indication: MULTIPLE MYELOMA
     Dosage: 11.25 mg (15 mg, days 1-21, every 28 days), Oral
     Route: 048
     Dates: start: 20120827, end: 20120831
  14. LENALIDOMIDE [Suspect]
     Indication: MULTIPLE MYELOMA
     Dates: start: 20120916, end: 20120916
  15. LENALIDOMIDE [Suspect]
     Indication: MULTIPLE MYELOMA
     Dosage: 11.25 mg (15 mg,Days 1-21, every 28 days),Oral
     Route: 048
     Dates: start: 20120924, end: 20121007
  16. DEXAMETHASONE [Suspect]
     Indication: MULTIPLE MYELOMA
     Dosage: 5.7143 mg (40 mg, Days 1, 8, 15, 22, every 28 days)
     Dates: start: 20110704, end: 20120806
  17. DEXAMETHASONE [Suspect]
     Indication: MULTIPLE MYELOMA
     Dosage: 5.7143 mg (40 mg,Days 1, 8, 15, 22, every 28 days)
     Dates: start: 20120827, end: 20120827
  18. DEXAMETHASONE [Suspect]
     Indication: MULTIPLE MYELOMA
     Dosage: 5.7143 mg (40 mg,Days 1, 8, 15, 22, every 28 days)
     Dates: start: 20120910, end: 20120917
  19. DEXAMETHASONE [Suspect]
     Indication: MULTIPLE MYELOMA
     Dosage: 2.8571 mg (20 mg,Days 1, 8, 15, 22, every 28 days)
     Dates: start: 20120924, end: 20121001
  20. DEXAMETHASONE [Suspect]
     Indication: MULTIPLE MYELOMA
     Dosage: 1.7143 mg (12 mg,Days 1, 8, 15, 22, every 28 days)
     Dates: start: 20121105
  21. ACICLOVIR (ACICLOVIR) (ACICLOVIR) [Concomitant]
  22. AMITRIPTILINE (AMITRIPTYLINE) (AMITRIPTYLINE) [Concomitant]
  23. CIPROFLOXACINE (CIPROFLOXACINE) (CIPROFLOXACINE) [Concomitant]
  24. FOSTER (BECLOMETASONE DIPROPIONATE) (BECLOMIETASONE) [Concomitant]
  25. LEVOTIROXINE (LEVOTHYROXINE) (LEVOTHYROXINE) [Concomitant]
  26. LORAZEPAM (LORAZEPAM) (LORAZEPAM) [Concomitant]
  27. PREGABALINE (PREGABALIN) (PREGABALINE) [Concomitant]
  28. VISCOFRESH (CARMELLOSE) (CARMELLOSE) [Concomitant]
  29. ZOLENDRONIC ACID (ZOLEDRONIC ACID) (ZOLEDRONIC ACID) [Concomitant]

REACTIONS (3)
  - Hypokalaemia [None]
  - Hypocalcaemia [None]
  - Hypomagnesaemia [None]
